FAERS Safety Report 23798064 (Version 6)
Quarter: 2024Q3

REPORT INFORMATION
  Report Type: Spontaneous
  Country: US (occurrence: US)
  Receive Date: 20240430
  Receipt Date: 20240813
  Transmission Date: 20241017
  Serious: Yes (Hospitalization)
  Sender: JOHNSON AND JOHNSON
  Company Number: US-JNJFOC-20240469328

PATIENT
  Sex: Female

DRUGS (7)
  1. UPTRAVI [Suspect]
     Active Substance: SELEXIPAG
     Indication: Product used for unknown indication
     Route: 048
  2. ADEMPAS [Suspect]
     Active Substance: RIOCIGUAT
     Indication: Product used for unknown indication
     Route: 065
  3. AMBRISENTAN [Suspect]
     Active Substance: AMBRISENTAN
     Indication: Pulmonary arterial hypertension
     Route: 065
     Dates: start: 20240320
  4. AMBRISENTAN [Suspect]
     Active Substance: AMBRISENTAN
     Indication: Pulmonary hypertension
  5. REMODULIN [Suspect]
     Active Substance: TREPROSTINIL
     Indication: Product used for unknown indication
     Route: 065
  6. XARELTO [Concomitant]
     Active Substance: RIVAROXABAN
  7. OPSUMIT [Concomitant]
     Active Substance: MACITENTAN

REACTIONS (11)
  - Syncope [Unknown]
  - Loss of consciousness [Unknown]
  - Gastroenteritis viral [Unknown]
  - Heart rate increased [Unknown]
  - Dehydration [Unknown]
  - Gastrointestinal infection [Unknown]
  - Therapy change [Unknown]
  - Right ventricular dysfunction [Unknown]
  - Flushing [Not Recovered/Not Resolved]
  - Off label use [Unknown]
  - Oxygen therapy [Unknown]

NARRATIVE: CASE EVENT DATE: 20240416
